FAERS Safety Report 4377770-4 (Version None)
Quarter: 2004Q2

REPORT INFORMATION
  Report Type: 
  Country: None (occurrence: None)
  Receive Date: 20040615
  Receipt Date: 20040615
  Transmission Date: 20050107
  Serious: No
  Sender: FDA-Public Use
  Company Number: None

PATIENT
  Sex: Male

DRUGS (2)
  1. HUMALOG [Suspect]
     Indication: DIABETES MELLITUS
     Dosage: UD SQ
     Route: 058
     Dates: start: 20040401
  2. HUMALOG [Suspect]
     Indication: DIABETES MELLITUS
     Dosage: UD SQ
     Route: 058
     Dates: start: 20040527

REACTIONS (1)
  - BLOOD GLUCOSE INCREASED [None]
